FAERS Safety Report 14289368 (Version 1)
Quarter: 2017Q4

REPORT INFORMATION
  Report Type: Spontaneous
  Country: US (occurrence: US)
  Receive Date: 20171214
  Receipt Date: 20171214
  Transmission Date: 20180321
  Serious: Yes (Other)
  Sender: FDA-Public Use
  Company Number: None

PATIENT
  Age: 64 Year
  Sex: Male
  Weight: 81 kg

DRUGS (1)
  1. BUPRENORPHINE/NALOXONE [Suspect]
     Active Substance: BUPRENORPHINE\NALOXONE
     Indication: DRUG USE DISORDER
     Route: 060
     Dates: start: 20170501, end: 20171214

REACTIONS (5)
  - Nausea [None]
  - Drug intolerance [None]
  - Drug effect decreased [None]
  - Drug dependence [None]
  - Vomiting [None]

NARRATIVE: CASE EVENT DATE: 20171214
